FAERS Safety Report 17798182 (Version 2)
Quarter: 2020Q2

REPORT INFORMATION
  Report Type: Spontaneous
  Country: CN (occurrence: CN)
  Receive Date: 20200518
  Receipt Date: 20200522
  Transmission Date: 20200714
  Serious: Yes (Death, Other)
  Sender: FDA-Public Use
  Company Number: CN-ASTRAZENECA-2020SE63386

PATIENT
  Age: 57 Year
  Sex: Female
  Weight: 70 kg

DRUGS (4)
  1. IRESSA [Suspect]
     Active Substance: GEFITINIB
     Indication: NON-SMALL CELL LUNG CANCER
     Route: 048
     Dates: start: 201711, end: 201912
  2. PEMETREXED. [Suspect]
     Active Substance: PEMETREXED
     Dosage: UNKNOWN DOSE, ONCE EVERY 20 DAYS, TWO TIMES IN ALL
     Route: 042
  3. TAGRISSO [Suspect]
     Active Substance: OSIMERTINIB
     Route: 048
  4. BEVACIZUMAB. [Suspect]
     Active Substance: BEVACIZUMAB
     Dosage: UNKNOWN DOSE, ONCE EVERY 20 DAYS, TWO TIMES IN ALL
     Route: 042

REACTIONS (6)
  - Metastases to bone [Unknown]
  - Drug resistance [Fatal]
  - Somnolence [Unknown]
  - Headache [Unknown]
  - Feeding disorder [Unknown]
  - Drug ineffective [Unknown]

NARRATIVE: CASE EVENT DATE: 201911
